FAERS Safety Report 8308065-1 (Version None)
Quarter: 2012Q2

REPORT INFORMATION
  Report Type: 
  Country: None (occurrence: None)
  Receive Date: 20120424
  Receipt Date: 20120417
  Transmission Date: 20120825
  Serious: Yes (Death, Other)
  Sender: FDA-Public Use
  Company Number: US-JNJFOC-20120409111

PATIENT

DRUGS (8)
  1. CYCLOPHOSPHAMIDE [Suspect]
     Indication: B-CELL LYMPHOMA
     Dosage: FOR 5 DAYS AT 3 WEEK INTERVAL
     Route: 065
  2. TOSITUMOMAB [Suspect]
     Indication: B-CELL LYMPHOMA
     Dosage: FOR 5 DAYS AT 3 WEEK INTERVAL
     Route: 065
  3. VINCRISTINE [Suspect]
     Indication: B-CELL LYMPHOMA
     Dosage: FOR 5 DAYS AT 3 WEEK INTERVAL
     Route: 065
  4. DOXORUBICIN HCL [Suspect]
     Indication: B-CELL LYMPHOMA
     Dosage: FOR 5 DAYS AT 3 WEEK INTERVAL
     Route: 042
  5. RITUXIMAB [Suspect]
     Indication: B-CELL LYMPHOMA
     Dosage: FOR 5 DAYS AT 3 WEEK INTERVAL
     Route: 065
  6. TOSITUMOMAB-IODINE 131 [Suspect]
     Indication: B-CELL LYMPHOMA
     Dosage: DOSIMETRIC
     Route: 065
  7. PREDNISONE TAB [Suspect]
     Indication: B-CELL LYMPHOMA
     Dosage: FOR 5 DAYS AT 3 WEEK INTERVAL
     Route: 065
  8. TOSITUMOMAB-IODINE 131 [Suspect]
     Dosage: THERAPEUTIC
     Route: 065

REACTIONS (7)
  - DEATH [None]
  - B-CELL LYMPHOMA [None]
  - HAEMATOTOXICITY [None]
  - NEOPLASM MALIGNANT [None]
  - ADVERSE EVENT [None]
  - MYELODYSPLASTIC SYNDROME [None]
  - ACUTE MYELOID LEUKAEMIA [None]
